FAERS Safety Report 12412428 (Version 5)
Quarter: 2016Q4

REPORT INFORMATION
  Report Type: Report from Study
  Country: CA (occurrence: CA)
  Receive Date: 20160527
  Receipt Date: 20161025
  Transmission Date: 20170207
  Serious: Yes (Other)
  Sender: FDA-Public Use
  Company Number: CA-SA-2015SA171960

PATIENT
  Age: 41 Year
  Sex: Female
  Weight: 77 kg

DRUGS (7)
  1. DESOGESTREL AND ETHINYL ESTRADIOL [Concomitant]
     Active Substance: DESOGESTREL\ETHINYL ESTRADIOL
     Indication: CONTRACEPTION
     Route: 048
  2. FOLIC ACID. [Concomitant]
     Active Substance: FOLIC ACID
     Route: 048
  3. CALCIUM [Concomitant]
     Active Substance: CALCIUM
     Route: 048
  4. VITAMIN D [Concomitant]
     Active Substance: CHOLECALCIFEROL
     Route: 048
  5. ACYCLOVIR. [Concomitant]
     Active Substance: ACYCLOVIR
     Indication: ANTIVIRAL TREATMENT
     Dosage: STOP DATE OR DURATION: 35 DAYS
     Route: 048
     Dates: start: 20151026
  6. LEMTRADA [Suspect]
     Active Substance: ALEMTUZUMAB
     Indication: RELAPSING-REMITTING MULTIPLE SCLEROSIS
     Route: 041
     Dates: start: 20151026, end: 20151030
  7. SOLU-MEDROL [Concomitant]
     Active Substance: METHYLPREDNISOLONE SODIUM SUCCINATE
     Indication: PREMEDICATION
     Route: 042
     Dates: start: 20151026, end: 20151030

REACTIONS (45)
  - Urine odour abnormal [Recovering/Resolving]
  - Uhthoff^s phenomenon [Recovering/Resolving]
  - Nephrolithiasis [Unknown]
  - Urine leukocyte esterase positive [Not Recovered/Not Resolved]
  - Hypersomnia [Not Recovered/Not Resolved]
  - Flushing [Recovered/Resolved]
  - Urine analysis abnormal [Recovered/Resolved]
  - Fall [Unknown]
  - Pain in extremity [Recovering/Resolving]
  - Bacterial test positive [Not Recovered/Not Resolved]
  - Urine analysis abnormal [Recovering/Resolving]
  - Night sweats [Recovered/Resolved]
  - Sensory disturbance [Recovered/Resolved]
  - Muscle twitching [Recovering/Resolving]
  - Paraesthesia oral [Recovering/Resolving]
  - Urine analysis abnormal [Not Recovered/Not Resolved]
  - Lymphopenia [Recovered/Resolved]
  - Headache [Recovered/Resolved]
  - Vomiting [Recovered/Resolved]
  - Urinary sediment present [Not Recovered/Not Resolved]
  - Nitrite urine present [Recovered/Resolved]
  - Hyperoxaluria [Not Recovered/Not Resolved]
  - Leukocyturia [Recovered/Resolved]
  - Lymphocyte percentage decreased [Recovered/Resolved]
  - Pain [Recovered/Resolved]
  - Hypoaesthesia oral [Recovering/Resolving]
  - Micturition disorder [Recovering/Resolving]
  - Lymphocyte count decreased [Recovered/Resolved]
  - White blood cell count decreased [Recovered/Resolved]
  - Urinary tract infection [Not Recovered/Not Resolved]
  - Dysuria [Not Recovered/Not Resolved]
  - Dehydration [Recovered/Resolved]
  - Blood uric acid increased [Not Recovered/Not Resolved]
  - Nasopharyngitis [Recovered/Resolved]
  - Neutrophil percentage increased [Recovered/Resolved]
  - Fatigue [Recovering/Resolving]
  - Gastroenteritis [Recovered/Resolved]
  - Rash [Not Recovered/Not Resolved]
  - Eye irritation [Recovering/Resolving]
  - Feeling cold [Recovered/Resolved]
  - Burning sensation [Recovering/Resolving]
  - Device dislocation [Recovered/Resolved]
  - Hypertension [Recovered/Resolved]
  - Red cell distribution width increased [Not Recovered/Not Resolved]
  - Oral herpes [Not Recovered/Not Resolved]

NARRATIVE: CASE EVENT DATE: 2015
